FAERS Safety Report 5893368-0 (Version None)
Quarter: 2008Q3

REPORT INFORMATION
  Report Type: 
  Country: None (occurrence: None)
  Receive Date: 20080923
  Receipt Date: 20080912
  Transmission Date: 20090109
  Serious: Yes (Hospitalization)
  Sender: FDA-Public Use
  Company Number: US-BAYER-200833417NA

PATIENT
  Age: 64 Year
  Sex: Male

DRUGS (4)
  1. DACARBAZINE [Suspect]
     Indication: MALIGNANT MELANOMA
     Dosage: TOTAL DAILY DOSE: 2160 MG
     Route: 042
     Dates: start: 20080709, end: 20080709
  2. DACARBAZINE [Suspect]
     Dosage: TOTAL DAILY DOSE: 2120 MG
     Route: 042
     Dates: start: 20080818
  3. DASATINIB [Suspect]
     Indication: MALIGNANT MELANOMA
     Dosage: TOTAL DAILY DOSE: 140 MG
     Route: 048
     Dates: start: 20080710, end: 20080727
  4. DASATINIB [Suspect]
     Dosage: TOTAL DAILY DOSE: 140 MG
     Route: 048
     Dates: start: 20080819, end: 20080901

REACTIONS (3)
  - CELLULITIS [None]
  - FEBRILE NEUTROPENIA [None]
  - STAPHYLOCOCCAL INFECTION [None]
